FAERS Safety Report 15551935 (Version 1)
Quarter: 2018Q4

REPORT INFORMATION
  Report Type: Spontaneous
  Country: PL (occurrence: PL)
  Receive Date: 20181025
  Receipt Date: 20181025
  Transmission Date: 20190205
  Serious: Yes (Hospitalization)
  Sender: FDA-Public Use
  Company Number: PHHY2018PL137332

PATIENT
  Sex: Female
  Weight: 55 kg

DRUGS (1)
  1. METHOTREXAT [Suspect]
     Active Substance: METHOTREXATE
     Indication: ARTHRITIS ENTEROPATHIC
     Dosage: 15 MG, QW
     Route: 048
     Dates: start: 201207, end: 201208

REACTIONS (3)
  - Dyspnoea [Unknown]
  - Drug intolerance [Recovered/Resolved]
  - Malaise [Unknown]
